FAERS Safety Report 7619942-9 (Version None)
Quarter: 2011Q3

REPORT INFORMATION
  Report Type: 
  Country: None (occurrence: None)
  Receive Date: 20110719
  Receipt Date: 20110705
  Transmission Date: 20111222
  Serious: Yes (Other)
  Sender: FDA-Public Use
  Company Number: CZ-SANOFI-AVENTIS-2011SA044388

PATIENT
  Sex: Male
  Weight: 98 kg

DRUGS (9)
  1. DRONEDARONE HCL [Suspect]
     Indication: ATRIAL FIBRILLATION
     Route: 048
     Dates: start: 20110128
  2. WARFARIN SODIUM [Concomitant]
  3. VERAPAMIL [Concomitant]
     Dates: start: 20110226
  4. THIAZIDES [Concomitant]
  5. VALSARTAN [Concomitant]
  6. VERAPAMIL [Concomitant]
  7. METFORMIN HCL [Concomitant]
  8. METFORMIN HCL [Concomitant]
     Dates: start: 20110210
  9. VERAPAMIL [Concomitant]
     Dates: start: 20110205, end: 20110225

REACTIONS (1)
  - CARDIAC FAILURE [None]
